FAERS Safety Report 10016564 (Version 3)
Quarter: 2014Q2

REPORT INFORMATION
  Report Type: Spontaneous
  Country: US (occurrence: US)
  Receive Date: 20140317
  Receipt Date: 20140416
  Transmission Date: 20141212
  Serious: Yes (Death, Other)
  Sender: FDA-Public Use
  Company Number: US-GILEAD-2014-0096847

PATIENT
  Sex: Male

DRUGS (4)
  1. LETAIRIS [Suspect]
     Indication: PULMONARY HYPERTENSION
     Dosage: 10 MG, UNK
     Route: 048
     Dates: start: 20130619, end: 20140228
  2. LETAIRIS [Suspect]
     Indication: PULMONARY FIBROSIS
  3. ADVAIR [Concomitant]
  4. PROVENTIL                          /00139501/ [Concomitant]

REACTIONS (1)
  - Respiratory failure [Fatal]
